FAERS Safety Report 26156929 (Version 1)
Quarter: 2025Q4

REPORT INFORMATION
  Report Type: Spontaneous
  Country: CN (occurrence: CN)
  Receive Date: 20251215
  Receipt Date: 20251215
  Transmission Date: 20260118
  Serious: Yes (Other)
  Sender: ROCHE
  Company Number: CN-ROCHE-10000451631

PATIENT

DRUGS (4)
  1. GLOFITAMAB [Suspect]
     Active Substance: GLOFITAMAB
     Indication: Diffuse large B-cell lymphoma
  2. POLATUZUMAB VEDOTIN [Suspect]
     Active Substance: POLATUZUMAB VEDOTIN
     Indication: Diffuse large B-cell lymphoma
  3. ZINC OXIDE [Concomitant]
     Active Substance: ZINC OXIDE
  4. FAMCICLOVIR [Concomitant]
     Active Substance: FAMCICLOVIR

REACTIONS (23)
  - Haematocrit decreased [Unknown]
  - Lung neoplasm [Unknown]
  - Monocyte count increased [Unknown]
  - Pulmonary mass [Unknown]
  - Pericardial effusion [Unknown]
  - Accessory spleen [Unknown]
  - Renal cyst [Unknown]
  - Skin wound [Unknown]
  - Pyelocaliectasis [Unknown]
  - Pneumonia [Unknown]
  - Nephritis [Unknown]
  - Pelvic mass [Unknown]
  - Colorectal adenoma [Unknown]
  - Hydronephrosis [Unknown]
  - Soft tissue inflammation [Unknown]
  - Lymphoid tissue hyperplasia [Unknown]
  - Diffuse large B-cell lymphoma [Unknown]
  - Drug ineffective [Unknown]
  - Herpes zoster [Recovering/Resolving]
  - Herpetic radiculopathy [Unknown]
  - Skin infection [Unknown]
  - Hepatic cyst [Unknown]
  - Ureteric dilatation [Unknown]
